FAERS Safety Report 9145699 (Version 1)
Quarter: 2013Q1

REPORT INFORMATION
  Report Type: Spontaneous
  Country: US (occurrence: US)
  Receive Date: 20130307
  Receipt Date: 20130307
  Transmission Date: 20140127
  Serious: Yes (Other)
  Sender: FDA-Public Use
  Company Number: US-BRISTOL-MYERS SQUIBB COMPANY-17428475

PATIENT
  Age: 41 Year
  Sex: Female

DRUGS (7)
  1. ORENCIA FOR INJ [Suspect]
     Indication: RHEUMATOID ARTHRITIS
     Dates: start: 201210
  2. ABATACEPT SUBQ INJECTION 125MG/ML [Suspect]
     Indication: RHEUMATOID ARTHRITIS
     Route: 058
     Dates: start: 201212
  3. METHOTREXATE [Concomitant]
  4. PLAQUENIL [Concomitant]
  5. VERAPAMIL [Concomitant]
  6. ZANTAC [Concomitant]
  7. CLARITIN [Concomitant]

REACTIONS (1)
  - Pericardial effusion [Recovering/Resolving]
